FAERS Safety Report 9343937 (Version 1)
Quarter: 2013Q2

REPORT INFORMATION
  Report Type: Spontaneous
  Country: US (occurrence: US)
  Receive Date: 20130612
  Receipt Date: 20130612
  Transmission Date: 20140414
  Serious: Yes (Other)
  Sender: FDA-Public Use
  Company Number: US-ROCHE-1024466

PATIENT
  Age: 25 Year
  Sex: Male
  Weight: 97.61 kg

DRUGS (1)
  1. ACCUTANE [Suspect]
     Indication: ACNE
     Route: 065
     Dates: start: 199711, end: 199801

REACTIONS (4)
  - Colitis ulcerative [Unknown]
  - Emotional distress [Unknown]
  - Depression [Unknown]
  - Large intestine polyp [Unknown]
